FAERS Safety Report 8586619-5 (Version None)
Quarter: 2012Q3

REPORT INFORMATION
  Report Type: 
  Country: None (occurrence: None)
  Receive Date: 20120810
  Receipt Date: 20120801
  Transmission Date: 20120928
  Serious: Yes (Hospitalization)
  Sender: FDA-Public Use
  Company Number: US-JNJFOC-20120614649

PATIENT
  Sex: Female
  Weight: 51.71 kg

DRUGS (16)
  1. METHOTREXATE [Suspect]
     Route: 048
     Dates: start: 20120619
  2. PREDNISONE TAB [Concomitant]
     Route: 065
  3. UNSPECIFIED NEBULIZER [Suspect]
     Indication: RESPIRATORY DISORDER
     Route: 055
     Dates: start: 20110701, end: 20110101
  4. PREDNISONE TAB [Concomitant]
     Dosage: WEANING OFF
     Route: 065
  5. SIMPONI [Suspect]
     Indication: RHEUMATOID ARTHRITIS
     Route: 058
     Dates: start: 20120701
  6. PERFOROMIST [Concomitant]
     Route: 055
  7. PERFOROMIST [Concomitant]
     Dosage: IN EVENING
     Route: 055
  8. XOPENEX [Suspect]
     Indication: RESPIRATORY DISORDER
     Route: 055
     Dates: start: 20110701, end: 20110101
  9. CITRACAL D [Concomitant]
     Route: 065
  10. SIMPONI [Suspect]
     Route: 058
     Dates: start: 20110301, end: 20110401
  11. HUMIRA [Suspect]
     Indication: RHEUMATOID ARTHRITIS
     Route: 065
     Dates: start: 20110501, end: 20111201
  12. METHOTREXATE [Suspect]
     Route: 048
     Dates: start: 20120626
  13. METHOTREXATE [Suspect]
     Dosage: 1 AT BREAKFAST AND ONE AT DINNER
     Route: 048
     Dates: start: 20120703
  14. TYLENOL [Concomitant]
     Route: 065
  15. SIMPONI [Suspect]
     Route: 058
     Dates: start: 20120614
  16. METHOTREXATE [Suspect]
     Indication: RHEUMATOID ARTHRITIS
     Route: 048
     Dates: start: 20120710

REACTIONS (13)
  - DRUG INEFFECTIVE [None]
  - DYSPEPSIA [None]
  - ABNORMAL LOSS OF WEIGHT [None]
  - INSOMNIA [None]
  - ADVERSE EVENT [None]
  - DYSPNOEA [None]
  - ABDOMINAL DISCOMFORT [None]
  - WEIGHT INCREASED [None]
  - DECREASED APPETITE [None]
  - SKIN DISORDER [None]
  - RESPIRATORY DISORDER [None]
  - ASTHENIA [None]
  - FATIGUE [None]
